FAERS Safety Report 16337041 (Version 2)
Quarter: 2019Q2

REPORT INFORMATION
  Report Type: Spontaneous
  Country: PR (occurrence: PR)
  Receive Date: 20190521
  Receipt Date: 20190523
  Transmission Date: 20190711
  Serious: Yes (Other)
  Sender: FDA-Public Use
  Company Number: PR-COLGATE PALMOLIVE COMPANY-20190501392

PATIENT
  Sex: Female

DRUGS (1)
  1. COLGATE CAVITY PROTECTION [Suspect]
     Active Substance: SODIUM FLUORIDE
     Dosage: UNKNOWN DOSE, TID

REACTIONS (2)
  - Dental caries [Unknown]
  - Tooth loss [Unknown]
